FAERS Safety Report 21623495 (Version 1)
Quarter: 2022Q4

REPORT INFORMATION
  Report Type: Spontaneous
  Country: RU (occurrence: RU)
  Receive Date: 20221121
  Receipt Date: 20221121
  Transmission Date: 20230113
  Serious: Yes (Hospitalization)
  Sender: FDA-Public Use
  Company Number: RU-AMERICAN REGENT INC-2022003309

PATIENT
  Sex: Female

DRUGS (1)
  1. FERINJECT [Suspect]
     Active Substance: FERRIC CARBOXYMALTOSE
     Indication: Iron deficiency anaemia
     Dosage: 200 MILLIGRAM DILUTED IN 200 ML IN NACL

REACTIONS (3)
  - General physical health deterioration [Recovered/Resolved]
  - Product preparation issue [Unknown]
  - Anaphylactic shock [Recovered/Resolved]
